FAERS Safety Report 25749524 (Version 1)
Quarter: 2025Q3

REPORT INFORMATION
  Report Type: Spontaneous
  Country: EU (occurrence: EU)
  Receive Date: 20250902
  Receipt Date: 20250902
  Transmission Date: 20251021
  Serious: Yes (Other)
  Sender: RANBAXY
  Company Number: EU-SUN PHARMACEUTICAL INDUSTRIES LTD-2025RR-524312

PATIENT
  Age: 70 Year
  Sex: Male

DRUGS (11)
  1. GEMCITABINE [Suspect]
     Active Substance: GEMCITABINE
     Indication: Disease recurrence
     Route: 065
     Dates: start: 202008, end: 202201
  2. CAPECITABINE [Suspect]
     Active Substance: CAPECITABINE
     Indication: Pancreatic carcinoma metastatic
     Route: 065
     Dates: start: 202201
  3. CAPECITABINE [Suspect]
     Active Substance: CAPECITABINE
     Route: 065
     Dates: end: 202402
  4. IRINOTECAN [Suspect]
     Active Substance: IRINOTECAN
     Indication: Pancreatic carcinoma metastatic
     Route: 065
     Dates: start: 201809, end: 201901
  5. OXALIPLATIN [Suspect]
     Active Substance: OXALIPLATIN
     Indication: Pancreatic carcinoma metastatic
     Route: 065
     Dates: start: 201809, end: 201901
  6. LEUCOVORIN CALCIUM [Suspect]
     Active Substance: LEUCOVORIN CALCIUM
     Indication: Pancreatic carcinoma metastatic
     Route: 065
     Dates: start: 201809, end: 201901
  7. DOXORUBICIN [Suspect]
     Active Substance: DOXORUBICIN
     Indication: Metastases to liver
     Route: 065
     Dates: start: 20230922, end: 20230922
  8. FLUOROURACIL [Suspect]
     Active Substance: FLUOROURACIL
     Indication: Pancreatic carcinoma metastatic
     Route: 065
     Dates: start: 201809, end: 201901
  9. PACLITAXEL [Suspect]
     Active Substance: PACLITAXEL
     Indication: Disease recurrence
     Route: 065
     Dates: start: 202008, end: 202201
  10. PACLITAXEL [Suspect]
     Active Substance: PACLITAXEL
     Route: 065
     Dates: end: 202402
  11. IRINOTECAN [Suspect]
     Active Substance: IRINOTECAN
     Indication: Pancreatic carcinoma metastatic
     Route: 065
     Dates: start: 202201

REACTIONS (5)
  - Disease recurrence [Unknown]
  - Disease progression [Unknown]
  - Gastrointestinal toxicity [Unknown]
  - Colitis [Recovering/Resolving]
  - Diarrhoea [Recovering/Resolving]

NARRATIVE: CASE EVENT DATE: 20231101
